FAERS Safety Report 20109792 (Version 1)
Quarter: 2021Q4

REPORT INFORMATION
  Report Type: Spontaneous
  Country: US (occurrence: None)
  Receive Date: 20211124
  Receipt Date: 20211124
  Transmission Date: 20220303
  Serious: Yes (Hospitalization)
  Sender: FDA-Public Use
  Company Number: None

PATIENT
  Age: 39 Year
  Sex: Female

DRUGS (1)
  1. GLATIRAMER [Suspect]
     Active Substance: GLATIRAMER
     Dosage: OTHER QUANTITY : 40;?OTHER FREQUENCY : N/A;?
     Dates: start: 202106

REACTIONS (7)
  - Pain [None]
  - Chills [None]
  - Chest discomfort [None]
  - Tremor [None]
  - Communication disorder [None]
  - Injury associated with device [None]
  - Injection site haemorrhage [None]

NARRATIVE: CASE EVENT DATE: 20211121
